FAERS Safety Report 12455141 (Version 3)
Quarter: 2016Q3

REPORT INFORMATION
  Report Type: Report from Study
  Country: CR (occurrence: CR)
  Receive Date: 20160610
  Receipt Date: 20160805
  Transmission Date: 20161109
  Serious: Yes (Other)
  Sender: FDA-Public Use
  Company Number: PHHY2016CR077487

PATIENT
  Sex: Male
  Weight: 72 kg

DRUGS (4)
  1. EXFORGE [Suspect]
     Active Substance: AMLODIPINE BESYLATE\VALSARTAN
     Indication: HYPERTENSION
     Dosage: 1 DF, (10 MG AMLODIPINE AND 160 MG VALSARTAN)
     Route: 065
  2. EXFORGE [Suspect]
     Active Substance: AMLODIPINE BESYLATE\VALSARTAN
     Dosage: 1 DF, (10 MG AMLODIPINE AND 160 MG VALSARTAN)
     Route: 065
  3. LOMOTIL//LOPERAMIDE HYDROCHLORIDE [Concomitant]
     Indication: PRODUCT USED FOR UNKNOWN INDICATION
     Route: 065
  4. EXFORGE [Suspect]
     Active Substance: AMLODIPINE BESYLATE\VALSARTAN
     Dosage: 1 DF, (5 MG AMLODIPINE AND 160 MG VALSARTAN)
     Route: 065

REACTIONS (9)
  - Eye injury [Recovering/Resolving]
  - Hypoacusis [Unknown]
  - Laceration [Recovering/Resolving]
  - Blood pressure increased [Unknown]
  - Cardiac disorder [Unknown]
  - Sacroiliitis [Unknown]
  - Joint effusion [Unknown]
  - Gait disturbance [Unknown]
  - Accident [Unknown]
